FAERS Safety Report 23195839 (Version 1)
Quarter: 2023Q4

REPORT INFORMATION
  Report Type: Spontaneous
  Country: US (occurrence: US)
  Receive Date: 20231117
  Receipt Date: 20231117
  Transmission Date: 20240110
  Serious: Yes (Hospitalization)
  Sender: FDA-Public Use
  Company Number: US-BRISTOL-MYERS SQUIBB COMPANY-2023-163183

PATIENT
  Age: 84 Year
  Sex: Female

DRUGS (1)
  1. OPDIVO [Suspect]
     Active Substance: NIVOLUMAB
     Indication: Small cell lung cancer metastatic

REACTIONS (3)
  - Diabetic ketoacidosis [Recovered/Resolved]
  - Type 1 diabetes mellitus [Unknown]
  - Off label use [Unknown]
